FAERS Safety Report 20102086 (Version 1)
Quarter: 2021Q4

REPORT INFORMATION
  Report Type: Spontaneous
  Country: US (occurrence: None)
  Receive Date: 20211123
  Receipt Date: 20211123
  Transmission Date: 20220303
  Serious: No
  Sender: FDA-Public Use
  Company Number: None

PATIENT
  Age: 63 Year
  Sex: Female
  Weight: 99.7 kg

DRUGS (3)
  1. CYTARABINE [Suspect]
     Active Substance: CYTARABINE
     Indication: Product used for unknown indication
     Dates: end: 20211115
  2. DAUNORUBICIN [Suspect]
     Active Substance: DAUNORUBICIN
     Indication: Product used for unknown indication
     Dates: end: 20211115
  3. DAUNORUBICIN [Suspect]
     Active Substance: DAUNORUBICIN

REACTIONS (2)
  - Body temperature increased [None]
  - Neutropenia [None]

NARRATIVE: CASE EVENT DATE: 20211119
